FAERS Safety Report 9725219 (Version 1)
Quarter: 2013Q4

REPORT INFORMATION
  Report Type: Spontaneous
  Country: JP (occurrence: JP)
  Receive Date: 20131203
  Receipt Date: 20131203
  Transmission Date: 20140711
  Serious: Yes (Other)
  Sender: FDA-Public Use
  Company Number: JP-ROCHE-1310421

PATIENT
  Age: 55 Year
  Sex: Male

DRUGS (4)
  1. AVASTIN [Suspect]
     Indication: LUNG ADENOCARCINOMA RECURRENT
     Dosage: DOSAGE IS UNCERTAIN.
     Route: 041
  2. CARBOPLATIN [Concomitant]
     Indication: LUNG ADENOCARCINOMA RECURRENT
     Dosage: DOSAGE IS UNCERTAIN.
     Route: 041
  3. ALIMTA [Concomitant]
     Indication: LUNG ADENOCARCINOMA RECURRENT
     Dosage: DOSAGE IS UNCERTAIN.
     Route: 041
  4. WARFARIN POTASSIUM [Concomitant]
     Indication: PULMONARY EMBOLISM
     Dosage: DOSAGE IS UNCERTAIN.
     Route: 048

REACTIONS (2)
  - Pneumothorax spontaneous [Recovering/Resolving]
  - Infectious pleural effusion [Recovering/Resolving]
